FAERS Safety Report 8588498-9 (Version None)
Quarter: 2012Q3

REPORT INFORMATION
  Report Type: 
  Country: None (occurrence: None)
  Receive Date: 20120813
  Receipt Date: 20120802
  Transmission Date: 20120928
  Serious: Yes (Hospitalization)
  Sender: FDA-Public Use
  Company Number: US-JNJFOC-20120709725

PATIENT
  Age: 75 Year
  Sex: Male
  Weight: 74.8 kg

DRUGS (4)
  1. ZYTIGA [Suspect]
     Route: 048
  2. PREDNISONE TAB [Suspect]
     Indication: PROSTATE CANCER METASTATIC
     Route: 048
     Dates: start: 20120501
  3. ZYTIGA [Suspect]
     Indication: PROSTATE CANCER METASTATIC
     Route: 048
     Dates: start: 20120508
  4. DOCETAXEL [Suspect]
     Indication: PROSTATE CANCER METASTATIC
     Route: 042
     Dates: start: 20120501

REACTIONS (1)
  - FEBRILE NEUTROPENIA [None]
